FAERS Safety Report 5143948-5 (Version None)
Quarter: 2006Q4

REPORT INFORMATION
  Report Type: 
  Country: None (occurrence: None)
  Receive Date: 20061030
  Receipt Date: 20061017
  Transmission Date: 20070319
  Serious: Yes (Death, Hospitalization)
  Sender: FDA-Public Use
  Company Number: CERZ-11360

PATIENT
  Age: 27 Year
  Sex: Male
  Weight: 52 kg

DRUGS (1)
  1. CEREZYME [Suspect]
     Indication: GAUCHER'S DISEASE
     Dosage: 60 U/KG Q2WKS IV
     Route: 042
     Dates: start: 20010501, end: 20061009

REACTIONS (6)
  - CHEST DISCOMFORT [None]
  - DYSPNOEA [None]
  - GENERALISED OEDEMA [None]
  - PORTAL HYPERTENSION [None]
  - PULMONARY HYPERTENSION [None]
  - SEPTIC SHOCK [None]
